FAERS Safety Report 22151913 (Version 1)
Quarter: 2023Q1

REPORT INFORMATION
  Report Type: Spontaneous
  Country: PT (occurrence: PT)
  Receive Date: 20230329
  Receipt Date: 20230329
  Transmission Date: 20230418
  Serious: Yes (Death, Hospitalization, Other)
  Sender: FDA-Public Use
  Company Number: PT-009507513-2303PRT002697

PATIENT
  Age: 81 Year
  Sex: Male

DRUGS (2)
  1. GENTAMICIN [Suspect]
     Active Substance: GENTAMICIN
     Indication: Product used for unknown indication
  2. ERTAPENEM SODIUM [Suspect]
     Active Substance: ERTAPENEM SODIUM
     Indication: Product used for unknown indication
     Dosage: UNK

REACTIONS (8)
  - Death [Fatal]
  - Corynebacterium infection [None]
  - Hypoxia [None]
  - Acinetobacter infection [None]
  - Pathogen resistance [None]
  - Pyrexia [None]
  - Hypotension [None]
  - Product use issue [None]
